FAERS Safety Report 8760276 (Version 2)
Quarter: 2012Q4

REPORT INFORMATION
  Report Type: Spontaneous
  Country: US (occurrence: None)
  Receive Date: 20120820
  Receipt Date: 20121126
  Transmission Date: 20130627
  Serious: Yes (Death)
  Sender: FDA-Public Use
  Company Number: 2012-413

PATIENT
  Age: 56 Year
  Sex: Female

DRUGS (18)
  1. FAZACLO [Suspect]
     Indication: PARANOID SCHIZOPHRENIA
     Route: 048
     Dates: start: 20110215, end: 20120709
  2. FAZACLO [Suspect]
     Indication: PARANOID SCHIZOPHRENIA
     Route: 048
  3. RISPERDAL CONSTA (RISPERIDONE) [Concomitant]
  4. RISPERIDONE [Concomitant]
  5. LANTUS (INSULIN GLARGINE) [Concomitant]
  6. NOVOLOG (INSULIN ASPART) [Concomitant]
  7. MIRALAX (MACROGOL) [Concomitant]
  8. ADVAIR (FLUTICASONE PROPIONATE, SALMETEROL XINAFOATE) [Concomitant]
  9. DEPAKOTE (VALPROATE SEMISODIUM) [Concomitant]
  10. ISOSORBIDE [Concomitant]
  11. METFORMIN [Concomitant]
  12. GABAPENTIN [Concomitant]
  13. OMEPRAZOLE [Concomitant]
  14. ZOLOFT (SERTRALINE HYDROCHLORIDE) [Concomitant]
  15. ENALAPRIL [Concomitant]
  16. LOSARTAN [Concomitant]
  17. AMLODIPINE [Concomitant]
  18. BENZATROPINE [Concomitant]

REACTIONS (1)
  - Death [None]
